FAERS Safety Report 6931310-1 (Version None)
Quarter: 2010Q3

REPORT INFORMATION
  Report Type: 
  Country: None (occurrence: None)
  Receive Date: 20100816
  Receipt Date: 20100730
  Transmission Date: 20110219
  Serious: Yes (Other)
  Sender: FDA-Public Use
  Company Number: 1000015700

PATIENT
  Age: 50 Year
  Sex: Female

DRUGS (4)
  1. ESCITALOPRAM [Suspect]
     Indication: DEPRESSION
     Dosage: 5 MG (5 MG, 1 IN 1 D) ,ORAL, 10 MG (10 MG, 1 IN 1 D),ORAL, 15 MG (15 MG, 1 IN 1 D),ORAL
     Route: 048
     Dates: start: 20100413, end: 20100510
  2. ESCITALOPRAM [Suspect]
     Indication: DEPRESSION
     Dosage: 5 MG (5 MG, 1 IN 1 D) ,ORAL, 10 MG (10 MG, 1 IN 1 D),ORAL, 15 MG (15 MG, 1 IN 1 D),ORAL
     Route: 048
     Dates: start: 20100511, end: 20100527
  3. ESCITALOPRAM [Suspect]
     Indication: DEPRESSION
     Dosage: 5 MG (5 MG, 1 IN 1 D) ,ORAL, 10 MG (10 MG, 1 IN 1 D),ORAL, 15 MG (15 MG, 1 IN 1 D),ORAL
     Route: 048
     Dates: start: 20100528, end: 20100613
  4. ESCITALOPRAM [Suspect]
     Indication: DEPRESSION
     Dosage: 20 MG (20 MG, 1 IN 1 D),ORAL
     Dates: start: 20100614, end: 20100617

REACTIONS (4)
  - ANGIOEDEMA [None]
  - DRY MOUTH [None]
  - DYSPHAGIA [None]
  - HYPERSENSITIVITY [None]
